FAERS Safety Report 12262525 (Version 2)
Quarter: 2016Q3

REPORT INFORMATION
  Report Type: Spontaneous
  Country: GB (occurrence: GB)
  Receive Date: 20160413
  Receipt Date: 20160804
  Transmission Date: 20161109
  Serious: Yes (Other)
  Sender: FDA-Public Use
  Company Number: GB-AUROBINDO-AUR-APL-2016-04398

PATIENT
  Age: 58 Year
  Sex: Female
  Weight: 52.5 kg

DRUGS (1)
  1. ALENDRONIC ACID TABLETS 70MG [Suspect]
     Active Substance: ALENDRONIC ACID
     Indication: OSTEOPOROSIS
     Dosage: 70 MG
     Route: 048
     Dates: start: 200204, end: 201601

REACTIONS (8)
  - Osteorrhagia [Unknown]
  - Exposed bone in jaw [Unknown]
  - Post procedural complication [Unknown]
  - Dental care [Unknown]
  - Toothache [Not Recovered/Not Resolved]
  - Femur fracture [Recovered/Resolved]
  - Pain in jaw [Unknown]
  - Feeding disorder [Unknown]

NARRATIVE: CASE EVENT DATE: 201008
